FAERS Safety Report 7565528-4 (Version None)
Quarter: 2011Q2

REPORT INFORMATION
  Report Type: 
  Country: None (occurrence: None)
  Receive Date: 20110623
  Receipt Date: 20090113
  Transmission Date: 20111010
  Serious: No
  Sender: FDA-Public Use
  Company Number: 2009BI001501

PATIENT
  Age: 48 Year
  Sex: Male

DRUGS (4)
  1. AVONEX [Concomitant]
     Indication: MULTIPLE SCLEROSIS
     Route: 030
  2. TYSABRI [Suspect]
     Indication: MULTIPLE SCLEROSIS
     Route: 042
     Dates: start: 20080307, end: 20080924
  3. TYSABRI [Suspect]
     Route: 042
  4. TYSABRI [Suspect]
     Route: 042
     Dates: start: 20090611, end: 20110322

REACTIONS (1)
  - DRUG INEFFECTIVE [None]
